FAERS Safety Report 6271528-7 (Version None)
Quarter: 2009Q3

REPORT INFORMATION
  Report Type: 
  Country: None (occurrence: None)
  Receive Date: 20090717
  Receipt Date: 20090709
  Transmission Date: 20100115
  Serious: Yes (Other)
  Sender: FDA-Public Use
  Company Number: BH-PFIZER INC-2009238685

PATIENT
  Age: 42 Year

DRUGS (1)
  1. SOLU-CORTEF [Suspect]
     Indication: DRUG HYPERSENSITIVITY
     Dosage: 200 MG, UNK
     Route: 030
     Dates: start: 20080726, end: 20080726

REACTIONS (10)
  - ANAPHYLACTIC REACTION [None]
  - ANXIETY [None]
  - FLUSHING [None]
  - HYPERHIDROSIS [None]
  - MELAENA [None]
  - PALPITATIONS [None]
  - RESTLESSNESS [None]
  - SKIN ATROPHY [None]
  - SKIN REACTION [None]
  - TREMOR [None]
